FAERS Safety Report 6434315-2 (Version None)
Quarter: 2009Q4

REPORT INFORMATION
  Report Type: 
  Country: None (occurrence: None)
  Receive Date: 20091110
  Receipt Date: 20090514
  Transmission Date: 20100525
  Serious: No
  Sender: FDA-Public Use
  Company Number: US-ASTRAZENECA-2009SE09490

PATIENT
  Sex: Female

DRUGS (3)
  1. PRILOSEC OTC [Suspect]
     Route: 048
     Dates: start: 20090508, end: 20090513
  2. ESTROGEN [Concomitant]
  3. PENICILLIN VK [Concomitant]

REACTIONS (3)
  - HEART RATE INCREASED [None]
  - INSOMNIA [None]
  - TREMOR [None]
